FAERS Safety Report 9911744 (Version 1)
Quarter: 2014Q1

REPORT INFORMATION
  Report Type: Spontaneous
  Country: BR (occurrence: BR)
  Receive Date: 20140219
  Receipt Date: 20140219
  Transmission Date: 20141002
  Serious: Yes (Other)
  Sender: FDA-Public Use
  Company Number: PHHY2014BR018293

PATIENT
  Age: 70 Year
  Sex: Male
  Weight: 70 kg

DRUGS (5)
  1. MIRTAZAPINE SANDOZ [Suspect]
     Indication: DEPRESSION
     Dosage: 30 MG, QD
     Route: 048
     Dates: start: 201401
  2. MIRTAZAPINE SANDOZ [Suspect]
     Indication: ANXIETY
  3. IBUPROFEN [Concomitant]
     Indication: HEADACHE
     Dosage: 600 MG, QD
  4. DIAZEPAN [Concomitant]
     Indication: ANXIETY
     Dosage: 30 MG, 2 MORNING 1 NIGHT
  5. HIGROTON [Concomitant]
     Dosage: 25 MG, QD IN MORNING

REACTIONS (3)
  - Memory impairment [Not Recovered/Not Resolved]
  - Disorientation [Not Recovered/Not Resolved]
  - Insomnia [Not Recovered/Not Resolved]
